FAERS Safety Report 7146752-1 (Version None)
Quarter: 2010Q4

REPORT INFORMATION
  Report Type: 
  Country: None (occurrence: None)
  Receive Date: 20101208
  Receipt Date: 20101104
  Transmission Date: 20110411
  Serious: Yes (Death, Hospitalization, Other)
  Sender: FDA-Public Use
  Company Number: JP-AMGEN-JPNSP2010004515

PATIENT

DRUGS (12)
  1. ENBREL [Suspect]
     Indication: RHEUMATOID ARTHRITIS
     Dosage: 25 MG, 2X/WEEK
     Route: 058
     Dates: start: 20051026, end: 20100902
  2. PREDONINE [Suspect]
     Indication: RHEUMATOID ARTHRITIS
     Dosage: 20 MG, 1X/DAY
     Route: 048
     Dates: start: 20100630, end: 20100905
  3. RHEUMATREX [Suspect]
     Indication: RHEUMATOID ARTHRITIS
     Dosage: 6 MG, WEEKLY
     Route: 048
     Dates: start: 20010101, end: 20100828
  4. LOXONIN [Concomitant]
     Indication: RHEUMATOID ARTHRITIS
     Dosage: 180 MG, SINGLE
     Route: 048
     Dates: end: 20100905
  5. PROMAC /JPN/ [Concomitant]
     Indication: PROPHYLAXIS AGAINST GASTROINTESTINAL ULCER
     Dosage: 150 MG, SINGLE
     Route: 048
     Dates: end: 20100905
  6. PROCYLIN [Concomitant]
     Indication: SKIN ULCER
     Dosage: 80 MG, SINGLE
     Route: 048
     Dates: end: 20100905
  7. HALCION [Concomitant]
     Indication: INSOMNIA
     Dosage: 0.25 MG, SINGLE
     Route: 048
     Dates: end: 20100905
  8. MUCOSOLVAN [Concomitant]
     Indication: INTERSTITIAL LUNG DISEASE
     Dosage: 45 MG, SINGLE
     Route: 048
     Dates: end: 20100905
  9. FOLIAMIN [Concomitant]
     Indication: FOLATE DEFICIENCY
     Dosage: 5 MG, WEEKLY
     Route: 048
     Dates: end: 20100830
  10. FOLIAMIN [Concomitant]
     Indication: PROPHYLAXIS
  11. ACTONEL [Concomitant]
     Indication: OSTEOPOROSIS
     Dosage: 17.5 MG, WEEKLY
     Route: 048
     Dates: end: 20100830
  12. BLOPRESS [Concomitant]
     Indication: HYPERTENSION
     Dosage: 8 MG, 1X/DAY
     Route: 048
     Dates: end: 20100905

REACTIONS (13)
  - ABDOMINAL ABSCESS [None]
  - CEREBRAL INFARCTION [None]
  - DISSEMINATED INTRAVASCULAR COAGULATION [None]
  - FUNGAL INFECTION [None]
  - FUNGAL SEPSIS [None]
  - GASTRIC ULCER [None]
  - GASTRITIS EROSIVE [None]
  - GASTROINTESTINAL HAEMORRHAGE [None]
  - MULTI-ORGAN FAILURE [None]
  - PERITONITIS [None]
  - PNEUMONIA [None]
  - SEPTIC SHOCK [None]
  - SKIN ULCER [None]
